FAERS Safety Report 8923399 (Version 1)
Quarter: 2012Q4

REPORT INFORMATION
  Report Type: 
  Country: BR (occurrence: BR)
  Receive Date: 20121123
  Receipt Date: 20121123
  Transmission Date: 20130627
  Serious: Yes (Other)
  Sender: FDA-Public Use
  Company Number: PHHY2012BR105594

PATIENT
  Sex: Male
  Weight: 72 kg

DRUGS (6)
  1. RITALIN LA [Suspect]
     Dosage: 1 DF, Daily
     Route: 048
  2. RITALINA [Suspect]
     Indication: LIBIDO DISORDER
     Dosage: 1 DF, Daily
     Route: 048
  3. RITALINA [Suspect]
     Dosage: 1 DF, BID
     Route: 048
  4. RIVOTRIL [Suspect]
     Dosage: 2 DF, Daily
  5. PROZEM [Suspect]
  6. AMFEPRAMONE [Suspect]
     Dosage: 2 DF, Daily
     Route: 048

REACTIONS (4)
  - Hypertension [Not Recovered/Not Resolved]
  - Flatulence [Not Recovered/Not Resolved]
  - Swelling [Not Recovered/Not Resolved]
  - Overweight [Not Recovered/Not Resolved]
